FAERS Safety Report 25008534 (Version 1)
Quarter: 2025Q1

REPORT INFORMATION
  Report Type: Spontaneous
  Country: US (occurrence: None)
  Receive Date: 20250224
  Receipt Date: 20250224
  Transmission Date: 20250409
  Serious: No
  Sender: FDA-CTU
  Company Number: None

PATIENT
  Age: 21 Year
  Sex: Female
  Weight: 57.15 kg

DRUGS (1)
  1. BIVIGAM [Suspect]
     Active Substance: HUMAN IMMUNOGLOBULIN G
     Indication: Chronic inflammatory demyelinating polyradiculoneuropathy
     Route: 042

REACTIONS (2)
  - Drug hypersensitivity [None]
  - Infusion related reaction [None]

NARRATIVE: CASE EVENT DATE: 20250224
